FAERS Safety Report 8694936 (Version 6)
Quarter: 2013Q1

REPORT INFORMATION
  Report Type: Spontaneous
  Country: US (occurrence: US)
  Receive Date: 20120731
  Receipt Date: 20130207
  Transmission Date: 20140127
  Serious: Yes (Other)
  Sender: FDA-Public Use
  Company Number: PHEH2012US014753

PATIENT
  Age: 44 Year
  Sex: Female
  Weight: 61.68 kg

DRUGS (9)
  1. GILENYA [Suspect]
     Indication: MULTIPLE SCLEROSIS
     Dosage: 0.5 MG, QD
     Route: 048
     Dates: start: 20120614, end: 20121114
  2. FAMPRIDINE [Concomitant]
     Indication: MULTIPLE SCLEROSIS
     Dosage: 10 MG, BID
     Route: 048
  3. FAMPRIDINE [Concomitant]
     Indication: GAIT DISTURBANCE
  4. BACLOFEN [Concomitant]
     Indication: MUSCLE SPASTICITY
     Dosage: 10 MG, BID
     Route: 048
  5. NEURONTIN [Concomitant]
     Dosage: UNK UKN, UNK
  6. AMBIEN [Concomitant]
     Indication: SLEEP DISORDER
     Dosage: 10 MG, 1/4 TABLET AT THE TIME OF SLEEP
     Route: 048
  7. ASA [Concomitant]
     Dosage: UNK UKN, UNK
  8. OXYBUTYNIN [Concomitant]
     Indication: BLADDER DISORDER
     Dosage: 15 MG, UNK
  9. LEVOTHYROXINE [Concomitant]
     Indication: THYROID DISORDER
     Dosage: 13 UG, QD

REACTIONS (11)
  - Kidney infection [Not Recovered/Not Resolved]
  - Cystitis [Not Recovered/Not Resolved]
  - Hypothyroidism [Unknown]
  - Joint swelling [Not Recovered/Not Resolved]
  - Limb discomfort [Recovering/Resolving]
  - Gait disturbance [Recovering/Resolving]
  - Ligament sprain [Unknown]
  - Oedema peripheral [Recovering/Resolving]
  - Fall [Unknown]
  - Balance disorder [Not Recovered/Not Resolved]
  - Drug ineffective [Not Recovered/Not Resolved]
